FAERS Safety Report 18553053 (Version 3)
Quarter: 2021Q1

REPORT INFORMATION
  Report Type: Spontaneous
  Country: DE (occurrence: DE)
  Receive Date: 20201127
  Receipt Date: 20210120
  Transmission Date: 20210419
  Serious: Yes (Hospitalization)
  Sender: FDA-Public Use
  Company Number: DE-GW PHARMA-202011DEGW04054

PATIENT

DRUGS (9)
  1. FRISIUM [Concomitant]
     Active Substance: CLOBAZAM
     Dosage: 20 MILLIGRAM, QD (INCREASED FROM 7.5 TO 20 MG/DAY)
     Route: 065
     Dates: start: 2020, end: 20201104
  2. MACROGOL HEXAL [Concomitant]
     Active Substance: POLYETHYLENE GLYCOL 3350
     Indication: CONSTIPATION
     Dosage: 1?1?0 BAGS
     Route: 065
     Dates: start: 20201008
  3. EPIDYOLEX [Suspect]
     Active Substance: CANNABIDIOL
     Indication: LENNOX-GASTAUT SYNDROME
     Dosage: 16.4 MILLIGRAM/KILOGRAM, QD
     Route: 048
     Dates: end: 202010
  4. FRISIUM [Concomitant]
     Active Substance: CLOBAZAM
     Indication: EPILEPSY
     Dosage: 7.5 MILLIGRAM, QD (0?0?0?7.5)
     Route: 065
     Dates: start: 20201030, end: 2020
  5. MELATONIN [Concomitant]
     Active Substance: MELATONIN
     Indication: SLEEP DISORDER
     Dosage: 10 MILLIGRAM, QD (0?0?10)
     Route: 065
     Dates: start: 20201028
  6. ORFIRIL [Suspect]
     Active Substance: VALPROATE SODIUM
     Indication: EPILEPSY
     Dosage: 750 MILLIGRAM, QD (150?0?600)
     Route: 065
     Dates: start: 20201027
  7. LAMOTRIGIN DESITIN [Concomitant]
     Active Substance: LAMOTRIGINE
     Indication: EPILEPSY
     Dosage: 10 MILLIGRAM, QD (0?0?10)
     Route: 065
     Dates: start: 20201030, end: 20201112
  8. EPIDYOLEX [Suspect]
     Active Substance: CANNABIDIOL
     Dosage: 18.8 MILLIGRAM/KILOGRAM, QD
     Route: 048
     Dates: start: 20201019, end: 20201104
  9. VIMPAT [Concomitant]
     Active Substance: LACOSAMIDE
     Indication: EPILEPSY
     Dosage: 200 MILLIGRAM, BID (200?0?200)
     Route: 065
     Dates: end: 20201118

REACTIONS (5)
  - Seizure [Unknown]
  - Alanine aminotransferase increased [Recovered/Resolved]
  - Aspartate aminotransferase increased [Recovered/Resolved]
  - Ammonia increased [Unknown]
  - Abscess limb [Recovering/Resolving]

NARRATIVE: CASE EVENT DATE: 20200924
